FAERS Safety Report 9705877 (Version 1)
Quarter: 2013Q4

REPORT INFORMATION
  Report Type: Spontaneous
  Country: DK (occurrence: DK)
  Receive Date: 20131122
  Receipt Date: 20131122
  Transmission Date: 20140711
  Serious: Yes (Death, Life-Threatening, Hospitalization)
  Sender: FDA-Public Use
  Company Number: DK-ASTRAZENECA-2013SE85841

PATIENT
  Age: 10014 Day
  Sex: Male
  Weight: 125 kg

DRUGS (1)
  1. SEROQUEL PROLONG [Suspect]
     Indication: ANXIETY
     Route: 048
     Dates: start: 201112, end: 20130722

REACTIONS (4)
  - Pancreatitis necrotising [Fatal]
  - Multi-organ failure [Fatal]
  - Hypertriglyceridaemia [Fatal]
  - Abdominal pain upper [Not Recovered/Not Resolved]
